FAERS Safety Report 13940718 (Version 2)
Quarter: 2017Q3

REPORT INFORMATION
  Report Type: Report from Study
  Country: DE (occurrence: DE)
  Receive Date: 20170906
  Receipt Date: 20170920
  Transmission Date: 20171127
  Serious: Yes (Other)
  Sender: FDA-Public Use
  Company Number: PHHY2016DE151507

PATIENT
  Sex: Female

DRUGS (17)
  1. PANTOPRAZOL [Concomitant]
     Active Substance: PANTOPRAZOLE SODIUM
     Indication: PRODUCT USED FOR UNKNOWN INDICATION
     Dosage: 40 OT, QD (0-0-1)
     Route: 065
  2. NOVAMINOSULFON [Concomitant]
     Active Substance: METAMIZOLE SODIUM
     Indication: PRODUCT USED FOR UNKNOWN INDICATION
     Dosage: 1500 MG, TID (1-1-1)
     Route: 065
  3. TOREM [Concomitant]
     Active Substance: TORSEMIDE
     Indication: PRODUCT USED FOR UNKNOWN INDICATION
     Dosage: 10 OT, QD (1-0-0)
     Route: 065
     Dates: end: 20161129
  4. NITRAZEPAM [Concomitant]
     Active Substance: NITRAZEPAM
     Indication: PRODUCT USED FOR UNKNOWN INDICATION
     Dosage: 5 OT, QD (0-0-0-1)
     Route: 065
  5. MCP [Concomitant]
     Active Substance: METOCLOPRAMIDE HYDROCHLORIDE
     Indication: PRODUCT USED FOR UNKNOWN INDICATION
     Dosage: 10 OT, PRN
     Route: 065
  6. RAMIPRIL. [Concomitant]
     Active Substance: RAMIPRIL
     Indication: PRODUCT USED FOR UNKNOWN INDICATION
     Dosage: 2.5 MG, QD (1-0-0)
     Route: 065
     Dates: start: 20170711
  7. AMLODIPIN [Concomitant]
     Active Substance: AMLODIPINE BESYLATE
     Indication: PRODUCT USED FOR UNKNOWN INDICATION
     Dosage: 5 OT, BID (1-0-1)
     Route: 065
  8. EXJADE [Suspect]
     Active Substance: DEFERASIROX
     Dosage: 4.39 MG/KG, UNK (FCT)
     Route: 065
     Dates: start: 20161206, end: 20161213
  9. ASPIRIN. [Concomitant]
     Active Substance: ASPIRIN
     Indication: PRODUCT USED FOR UNKNOWN INDICATION
     Dosage: 100 OT, QD (1-0-0)
     Route: 065
  10. L THYROXIN [Concomitant]
     Active Substance: LEVOTHYROXINE SODIUM
     Indication: PRODUCT USED FOR UNKNOWN INDICATION
     Dosage: 50 UG, QD (1-0-0)
     Route: 065
     Dates: start: 20170614
  11. TOREM [Concomitant]
     Active Substance: TORSEMIDE
     Dosage: 1.5 DF, QD (1-0.5-0)
     Route: 065
     Dates: start: 20170124, end: 20170829
  12. JAKAVI [Concomitant]
     Active Substance: RUXOLITINIB
     Indication: PRODUCT USED FOR UNKNOWN INDICATION
     Dosage: 5 OT, QD (0-0-1)
     Route: 065
     Dates: start: 20160616, end: 20170829
  13. EXJADE [Suspect]
     Active Substance: DEFERASIROX
     Dosage: 8.78 MG/KG, UNK (FCT)
     Route: 065
     Dates: start: 20161214, end: 20170829
  14. SEVREDOL [Concomitant]
     Active Substance: MORPHINE
     Indication: PRODUCT USED FOR UNKNOWN INDICATION
     Dosage: 10 OT, PRN
     Route: 065
  15. EXJADE [Suspect]
     Active Substance: DEFERASIROX
     Indication: IRON OVERLOAD
     Dosage: 11.11 MG/KG, UNK
     Route: 065
     Dates: start: 20161004, end: 20161205
  16. SIMVASTATIN. [Concomitant]
     Active Substance: SIMVASTATIN
     Indication: PRODUCT USED FOR UNKNOWN INDICATION
     Dosage: 20 OT, QD (0-0-1)
     Route: 065
  17. OXYCODON [Concomitant]
     Active Substance: OXYCODONE
     Indication: PRODUCT USED FOR UNKNOWN INDICATION
     Dosage: 20 OT, BID (1-0-1)
     Route: 065

REACTIONS (6)
  - Asthenia [Unknown]
  - Blood thyroid stimulating hormone increased [Unknown]
  - Bronchitis [Recovered/Resolved]
  - Depressed mood [Unknown]
  - Decreased appetite [Unknown]
  - Nasopharyngitis [Unknown]

NARRATIVE: CASE EVENT DATE: 20161025
